FAERS Safety Report 9855278 (Version 1)
Quarter: 2014Q1

REPORT INFORMATION
  Report Type: Spontaneous
  Country: FR (occurrence: FR)
  Receive Date: 20140130
  Receipt Date: 20140130
  Transmission Date: 20141002
  Serious: Yes (Hospitalization)
  Sender: FDA-Public Use
  Company Number: FR-JNJFOC-20140114666

PATIENT
  Age: 68 Year
  Sex: Male

DRUGS (2)
  1. ZYTIGA [Suspect]
     Indication: PROSTATE CANCER
     Route: 048
     Dates: start: 201302, end: 201312
  2. ZYTIGA [Suspect]
     Indication: PROSTATE CANCER
     Route: 048

REACTIONS (4)
  - Renal failure acute [Not Recovered/Not Resolved]
  - Myalgia [Not Recovered/Not Resolved]
  - Metastases to bone [Unknown]
  - Adverse event [Not Recovered/Not Resolved]
